FAERS Safety Report 11742864 (Version 2)
Quarter: 2016Q1

REPORT INFORMATION
  Report Type: Spontaneous
  Country: US (occurrence: US)
  Receive Date: 20151116
  Receipt Date: 20160216
  Transmission Date: 20160525
  Serious: Yes (Hospitalization, Other)
  Sender: FDA-Public Use
  Company Number: US-PFIZER INC-2015375583

PATIENT
  Age: 61 Year
  Sex: Female
  Weight: 50 kg

DRUGS (4)
  1. LYRICA [Suspect]
     Active Substance: PREGABALIN
     Indication: HERPES ZOSTER
     Dosage: 75 MG, 3X/DAY
     Dates: start: 201412
  2. LYRICA [Suspect]
     Active Substance: PREGABALIN
     Indication: NEURALGIA
     Dosage: 75 MG, 1X/DAY AT BEDTIME
  3. LYRICA [Suspect]
     Active Substance: PREGABALIN
     Indication: PARAESTHESIA
     Dosage: 50 MG, 2X/DAY
     Dates: start: 201511
  4. LYRICA [Suspect]
     Active Substance: PREGABALIN
     Indication: PRURITUS
     Dosage: 50 MG, 2X/DAY
     Dates: start: 20150925

REACTIONS (6)
  - Bedridden [Recovered/Resolved]
  - Pruritus [Not Recovered/Not Resolved]
  - Drug tolerance decreased [Recovered/Resolved]
  - Neuralgia [Not Recovered/Not Resolved]
  - Somnolence [Recovered/Resolved]
  - Drug ineffective [Not Recovered/Not Resolved]

NARRATIVE: CASE EVENT DATE: 201412
